FAERS Safety Report 9322932 (Version 2)
Quarter: 2013Q3

REPORT INFORMATION
  Report Type: Spontaneous
  Country: US (occurrence: US)
  Receive Date: 20130601
  Receipt Date: 20130730
  Transmission Date: 20140515
  Serious: No
  Sender: FDA-Public Use
  Company Number: US-TEVA-407746USA

PATIENT
  Sex: Female

DRUGS (2)
  1. NUVIGIL [Suspect]
     Indication: FATIGUE MANAGEMENT
     Dates: start: 2012, end: 20130520
  2. NUVIGIL [Suspect]
     Dates: start: 2013

REACTIONS (3)
  - Somnolence [Recovered/Resolved]
  - Asthenia [Recovered/Resolved]
  - Off label use [Unknown]
